FAERS Safety Report 5466105-1 (Version None)
Quarter: 2007Q3

REPORT INFORMATION
  Report Type: 
  Country: None (occurrence: None)
  Receive Date: 20070924
  Receipt Date: 20070912
  Transmission Date: 20080115
  Serious: Yes (Other)
  Sender: FDA-Public Use
  Company Number: DE-PFIZER INC-2007077512

PATIENT
  Sex: Male

DRUGS (4)
  1. XALATAN [Suspect]
     Indication: GLAUCOMA
     Route: 047
     Dates: start: 19980101, end: 20061001
  2. VITAMIN C AND E [Concomitant]
  3. MAGNESIUM SULFATE [Concomitant]
  4. CALCIUM [Concomitant]

REACTIONS (3)
  - CHEST DISCOMFORT [None]
  - ECZEMA [None]
  - RESPIRATORY DISORDER [None]
